FAERS Safety Report 19970410 (Version 1)
Quarter: 2021Q4

REPORT INFORMATION
  Report Type: Spontaneous
  Country: US (occurrence: US)
  Receive Date: 20211019
  Receipt Date: 20211019
  Transmission Date: 20220303
  Serious: No
  Sender: FDA-Public Use
  Company Number: US-AMGEN-USASP2021160714

PATIENT
  Age: 55 Year
  Sex: Male

DRUGS (10)
  1. OTEZLA [Suspect]
     Active Substance: APREMILAST
     Indication: Psoriasis
     Dosage: 30 MILLIGRAM, BID
     Route: 048
     Dates: start: 20201231
  2. ALLOPURINOL [Concomitant]
     Active Substance: ALLOPURINOL
  3. AMITRIPTYLINE [Concomitant]
     Active Substance: AMITRIPTYLINE
  4. BETAMETH DIPROPIONATE [Concomitant]
  5. CELECOXIB [Concomitant]
     Active Substance: CELECOXIB
  6. CLOBETASOL [Concomitant]
     Active Substance: CLOBETASOL
  7. LISINOPRIL [Concomitant]
     Active Substance: LISINOPRIL
  8. MONTELUKAST [Concomitant]
     Active Substance: MONTELUKAST SODIUM
  9. OMEPRAZOLE [Concomitant]
     Active Substance: OMEPRAZOLE
  10. TRIAMCINOLONE [Concomitant]
     Active Substance: TRIAMCINOLONE

REACTIONS (2)
  - Psoriasis [Not Recovered/Not Resolved]
  - Product dose omission issue [Not Recovered/Not Resolved]
